FAERS Safety Report 5522073-5 (Version None)
Quarter: 2007Q4

REPORT INFORMATION
  Report Type: 
  Country: None (occurrence: None)
  Receive Date: 20071120
  Receipt Date: 20071105
  Transmission Date: 20080405
  Serious: Yes (Hospitalization)
  Sender: FDA-Public Use
  Company Number: JP-ROCHE-531828

PATIENT
  Age: 75 Year
  Sex: Female
  Weight: 65 kg

DRUGS (17)
  1. PANALDINE [Suspect]
     Dosage: FREQUENCY REPORTED AS EVERY DAY.
     Route: 048
     Dates: start: 20071011, end: 20071022
  2. PLAVIX [Suspect]
     Dosage: FREQUENCY REPORTED AS EVERY DAY
     Route: 048
     Dates: start: 20071023, end: 20071024
  3. ASPIRIN [Concomitant]
     Route: 048
     Dates: start: 20071012
  4. FAMOTIDINE [Concomitant]
     Route: 048
  5. SOL-MELCORT [Concomitant]
     Dosage: DOSE REPORTED AS 500/125MG
     Route: 065
  6. SOLDEM [Concomitant]
  7. RESCULA [Concomitant]
     Route: 047
  8. MIKELAN [Concomitant]
     Dosage: DRUG REPORTED AS MIKELAN LA
     Route: 047
  9. FLUMETHOLON [Concomitant]
     Route: 047
  10. OLMETEC [Concomitant]
     Route: 048
  11. TRICHLORMETHIAZIDE [Concomitant]
     Route: 048
  12. STARSIS [Concomitant]
     Route: 048
  13. BROTIZOLAM [Concomitant]
     Dosage: DRUG REPORTED AS NOXTAL (BROTIZOLAM)
     Route: 048
  14. HITOCOBAMIN [Concomitant]
     Route: 048
  15. ALLELOCK [Concomitant]
     Route: 048
  16. COSMEGEN [Concomitant]
     Route: 048
  17. CARNACULIN [Concomitant]
     Route: 048

REACTIONS (2)
  - CONDITION AGGRAVATED [None]
  - RASH PRURITIC [None]
